FAERS Safety Report 24378773 (Version 1)
Quarter: 2024Q3

REPORT INFORMATION
  Report Type: Spontaneous
  Country: FR (occurrence: FR)
  Receive Date: 20240930
  Receipt Date: 20240930
  Transmission Date: 20241017
  Serious: Yes (Other)
  Sender: AUROBINDO
  Company Number: FR-AFSSAPS-AM2024000778

PATIENT
  Age: 86 Year
  Sex: Male

DRUGS (5)
  1. HYDROCHLOROTHIAZIDE\IRBESARTAN [Suspect]
     Active Substance: HYDROCHLOROTHIAZIDE\IRBESARTAN
     Indication: Product used for unknown indication
     Dosage: 1 DOSAGE FORM, ONCE A DAY
     Route: 048
     Dates: start: 20240726, end: 20240726
  2. NICARDIPINE HYDROCHLORIDE [Suspect]
     Active Substance: NICARDIPINE HYDROCHLORIDE
     Indication: Product used for unknown indication
     Dosage: 50 MILLIGRAM, ONCE A DAY
     Route: 048
     Dates: start: 20240726, end: 20240726
  3. RILMENIDINE [Suspect]
     Active Substance: RILMENIDINE
     Indication: Product used for unknown indication
     Dosage: 1 MILLIGRAM, ONCE A DAY
     Route: 048
     Dates: start: 20240726, end: 20240727
  4. IMOVANE [Concomitant]
     Active Substance: ZOPICLONE
     Indication: Product used for unknown indication
     Dosage: UNK
     Route: 065
  5. ANETHOLTRITHION [Concomitant]
     Active Substance: ANETHOLTRITHION
     Indication: Product used for unknown indication
     Dosage: UNK
     Route: 065

REACTIONS (2)
  - Hypotension [Recovered/Resolved]
  - Wrong patient [Recovered/Resolved]

NARRATIVE: CASE EVENT DATE: 20240726
